FAERS Safety Report 8769534 (Version 1)
Quarter: 2012Q4

REPORT INFORMATION
  Report Type: 
  Country: IT (occurrence: IT)
  Receive Date: 20120905
  Receipt Date: 20120905
  Transmission Date: 20130627
  Serious: Yes (Hospitalization)
  Sender: FDA-Public Use
  Company Number: IT-TEVA-355978ISR

PATIENT
  Age: 52 Year

DRUGS (1)
  1. PACLITAXEL TEVA [Suspect]
     Indication: GASTRIC CANCER
     Dates: start: 20120606, end: 20120621

REACTIONS (3)
  - Anaemia [Unknown]
  - Cholecystitis [Unknown]
  - Febrile neutropenia [Unknown]
